FAERS Safety Report 5022264-6 (Version None)
Quarter: 2006Q2

REPORT INFORMATION
  Report Type: 
  Country: None (occurrence: None)
  Receive Date: 20060609
  Receipt Date: 20050224
  Transmission Date: 20061013
  Serious: Yes (Hospitalization)
  Sender: FDA-Public Use
  Company Number: US-GLAXOSMITHKLINE-A0547271A

PATIENT
  Age: 57 Year
  Sex: Female

DRUGS (11)
  1. PAXIL [Suspect]
     Indication: DRUG USE FOR UNKNOWN INDICATION
     Route: 048
     Dates: start: 19960522
  2. XANAX [Suspect]
     Route: 048
     Dates: start: 20020119, end: 20020119
  3. DESYREL [Concomitant]
     Dosage: 50MG AT NIGHT
     Route: 048
  4. WELLBUTRIN [Concomitant]
     Indication: DRUG USE FOR UNKNOWN INDICATION
     Dosage: 200MGD UNKNOWN
     Route: 048
     Dates: start: 20020101
  5. DEPAKOTE [Concomitant]
     Dosage: 250MG TWICE PER DAY
  6. NEXIUM [Concomitant]
  7. COUMADIN [Concomitant]
  8. SYNTHROID [Concomitant]
  9. CHEMOTHERAPY [Concomitant]
  10. NICOTINE [Concomitant]
  11. MULTI-VITAMIN [Concomitant]

REACTIONS (13)
  - ADJUSTMENT DISORDER [None]
  - AGITATION [None]
  - ASTHENIA [None]
  - BIPOLAR DISORDER [None]
  - DEPRESSION [None]
  - DISTURBANCE IN ATTENTION [None]
  - DYSTHYMIC DISORDER [None]
  - INSOMNIA [None]
  - INTENTIONAL OVERDOSE [None]
  - NERVOUSNESS [None]
  - OBSESSIVE-COMPULSIVE DISORDER [None]
  - SUICIDAL IDEATION [None]
  - SUICIDE ATTEMPT [None]
